FAERS Safety Report 5522396-X (Version None)
Quarter: 2007Q4

REPORT INFORMATION
  Report Type: 
  Country: None (occurrence: None)
  Receive Date: 20071120
  Receipt Date: 20071108
  Transmission Date: 20080405
  Serious: Yes (Death, Other)
  Sender: FDA-Public Use
  Company Number: ES-PFIZER INC-2007094973

PATIENT
  Age: 69 Year
  Sex: Male

DRUGS (3)
  1. CELEBREX [Suspect]
     Indication: PROSTATE CANCER
     Route: 048
  2. ESTRACYT [Suspect]
     Indication: PROSTATE CANCER
     Route: 048
  3. TAXOTERE [Suspect]
     Indication: PROSTATE CANCER
     Route: 042

REACTIONS (1)
  - GASTRIC PERFORATION [None]
